FAERS Safety Report 7994760-0 (Version None)
Quarter: 2011Q4

REPORT INFORMATION
  Report Type: 
  Country: None (occurrence: None)
  Receive Date: 20111220
  Receipt Date: 20111216
  Transmission Date: 20120403
  Serious: Yes (Life-Threatening, Hospitalization)
  Sender: FDA-Public Use
  Company Number: GB-PFIZER INC-2011307370

PATIENT
  Age: 40 Year
  Sex: Male
  Weight: 78 kg

DRUGS (8)
  1. VARENICLINE TARTRATE [Suspect]
     Indication: SMOKING CESSATION THERAPY
     Route: 048
  2. FLUOXETINE [Suspect]
     Indication: ANXIETY
     Dosage: 20 MG, UNK
     Route: 048
     Dates: start: 20111003
  3. ACIDEX [Concomitant]
  4. EPROSARTAN [Concomitant]
  5. FELODIPINE [Concomitant]
  6. DOXAZOSIN MESILATE [Concomitant]
  7. LANSOPRAZOLE [Concomitant]
  8. ACETYLSALICYLIC ACID [Concomitant]

REACTIONS (9)
  - VOMITING [None]
  - AORTIC THROMBOSIS [None]
  - INTESTINAL ISCHAEMIA [None]
  - ABDOMINAL PAIN [None]
  - EMBOLISM [None]
  - ISCHAEMIC NEPHROPATHY [None]
  - PERIPHERAL ISCHAEMIA [None]
  - COAGULOPATHY [None]
  - NAUSEA [None]
